FAERS Safety Report 23866672 (Version 1)
Quarter: 2024Q2

REPORT INFORMATION
  Report Type: Report from Study
  Country: US (occurrence: US)
  Receive Date: 20240517
  Receipt Date: 20240517
  Transmission Date: 20240716
  Serious: Yes (Hospitalization)
  Sender: FDA-Public Use
  Company Number: US-ABBVIE-5761234

PATIENT
  Age: 28 Year
  Sex: Female

DRUGS (1)
  1. RINVOQ [Suspect]
     Active Substance: UPADACITINIB
     Indication: Crohn^s disease
     Route: 048
     Dates: start: 20240508

REACTIONS (3)
  - Large intestinal ulcer [Recovering/Resolving]
  - Hypophagia [Recovering/Resolving]
  - Fluid intake reduced [Recovering/Resolving]

NARRATIVE: CASE EVENT DATE: 20240501
